FAERS Safety Report 19786950 (Version 1)
Quarter: 2021Q3

REPORT INFORMATION
  Report Type: Spontaneous
  Country: US (occurrence: US)
  Receive Date: 20210903
  Receipt Date: 20210903
  Transmission Date: 20211014
  Serious: Yes (Death)
  Sender: FDA-Public Use
  Company Number: US-BAYER-2021-204378

PATIENT
  Age: 30 Year
  Sex: Male

DRUGS (4)
  1. IVERMECTIN. [Concomitant]
     Active Substance: IVERMECTIN
     Indication: COVID-19
  2. BAYER LOW DOSE [Suspect]
     Active Substance: ASPIRIN
     Indication: COVID-19
     Dosage: UNK
  3. ZINC. [Concomitant]
     Active Substance: ZINC
     Indication: COVID-19
  4. ASCORBIC ACID. [Concomitant]
     Active Substance: ASCORBIC ACID
     Indication: COVID-19

REACTIONS (2)
  - Product use in unapproved indication [None]
  - Death [Fatal]
